FAERS Safety Report 4791983-9 (Version None)
Quarter: 2005Q4

REPORT INFORMATION
  Report Type: 
  Country: None (occurrence: None)
  Receive Date: 20051007
  Receipt Date: 20050725
  Transmission Date: 20060501
  Serious: Yes (Hospitalization)
  Sender: FDA-Public Use
  Company Number: GR-ABBOTT-05P-066-0306683-00

PATIENT
  Sex: Male
  Weight: 104 kg

DRUGS (4)
  1. HUMIRA [Suspect]
     Indication: RHEUMATOID ARTHRITIS
     Dosage: 40 MG
     Route: 058
     Dates: start: 20050204, end: 20050721
  2. HUMIRA [Suspect]
     Route: 058
     Dates: start: 20050805
  3. IRBESARTAN [Concomitant]
     Indication: HYPERTENSION
     Dates: start: 20050301
  4. NEBIVOLOL HYDROCHLORIDE [Concomitant]
     Indication: HYPERTENSION
     Dates: start: 20050301

REACTIONS (3)
  - BUNDLE BRANCH BLOCK RIGHT [None]
  - HEART RATE INCREASED [None]
  - PULMONARY EMBOLISM [None]
